FAERS Safety Report 9370785 (Version 1)
Quarter: 2013Q2

REPORT INFORMATION
  Report Type: Spontaneous
  Country: US (occurrence: US)
  Receive Date: 20130626
  Receipt Date: 20130626
  Transmission Date: 20140414
  Serious: Yes (Other)
  Sender: FDA-Public Use
  Company Number: US-009507513-1306USA011251

PATIENT
  Sex: Female

DRUGS (2)
  1. FOSAMAX [Suspect]
     Dosage: UNK
     Route: 048
     Dates: start: 2008, end: 201106
  2. ALENDRONATE SODIUM [Suspect]
     Dosage: UNK
     Dates: start: 2008, end: 201106

REACTIONS (2)
  - Femur fracture [Unknown]
  - Humerus fracture [Unknown]
